FAERS Safety Report 11232395 (Version 1)
Quarter: 2015Q3

REPORT INFORMATION
  Report Type: Spontaneous
  Country: US (occurrence: US)
  Receive Date: 20150701
  Receipt Date: 20150701
  Transmission Date: 20151125
  Serious: No
  Sender: FDA-Public Use
  Company Number: US-BAYER-2015-363868

PATIENT
  Age: 75 Year
  Sex: Female
  Weight: 102 kg

DRUGS (4)
  1. CLARITIN [Suspect]
     Active Substance: LORATADINE
     Indication: SECRETION DISCHARGE
     Dosage: 1 DF, BID
     Route: 048
     Dates: start: 2014
  2. VITAMIN D [COLECALCIFEROL] [Concomitant]
     Dosage: UNK
  3. VITAMIN B12 [Concomitant]
     Active Substance: CYANOCOBALAMIN
     Dosage: UNK
  4. BAYER GENUINE ASPIRIN [Concomitant]
     Active Substance: ASPIRIN
     Dosage: 1 DF, BID

REACTIONS (2)
  - Product use issue [Unknown]
  - Product use issue [Unknown]

NARRATIVE: CASE EVENT DATE: 2014
